FAERS Safety Report 12619655 (Version 1)
Quarter: 2016Q3

REPORT INFORMATION
  Report Type: Report from Study
  Country: US (occurrence: US)
  Receive Date: 20160803
  Receipt Date: 20160803
  Transmission Date: 20161109
  Serious: No
  Sender: FDA-Public Use
  Company Number: US-009507513-1608USA001659

PATIENT

DRUGS (1)
  1. ZEPATIER [Suspect]
     Active Substance: ELBASVIR\GRAZOPREVIR
     Indication: HEPATITIS C
     Dosage: 1 TABLET, QD (STRENGTH: 50 MG ELBASVIR AND 100 MG GRAZOPREVIR)
     Route: 048

REACTIONS (2)
  - Rash [Unknown]
  - Abdominal pain [Unknown]
